FAERS Safety Report 20410737 (Version 1)
Quarter: 2022Q1

REPORT INFORMATION
  Report Type: Spontaneous
  Country: US (occurrence: None)
  Receive Date: 20220131
  Receipt Date: 20220131
  Transmission Date: 20220423
  Serious: No
  Sender: FDA-Public Use
  Company Number: None

PATIENT
  Age: 30 Year
  Sex: Female
  Weight: 63 kg

DRUGS (1)
  1. TEPEZZA [Suspect]
     Active Substance: TEPROTUMUMAB-TRBW
     Indication: Endocrine ophthalmopathy
     Dosage: OTHER FREQUENCY : 8 INFUSIONS;?
     Route: 042
     Dates: start: 20210723, end: 20211223

REACTIONS (2)
  - Menstrual disorder [None]
  - Amenorrhoea [None]

NARRATIVE: CASE EVENT DATE: 20210808
